FAERS Safety Report 16700719 (Version 1)
Quarter: 2019Q3

REPORT INFORMATION
  Report Type: Report from Study
  Country: PK (occurrence: PK)
  Receive Date: 20190814
  Receipt Date: 20190814
  Transmission Date: 20191004
  Serious: Yes (Other)
  Sender: FDA-Public Use
  Company Number: PK-SUN PHARMACEUTICAL INDUSTRIES LTD-2019RR-217522

PATIENT

DRUGS (2)
  1. TOPIRAMATE. [Suspect]
     Active Substance: TOPIRAMATE
     Indication: STROKE-LIKE MIGRAINE ATTACKS AFTER RADIATION THERAPY
     Route: 065
  2. LEVETIRACETAM. [Suspect]
     Active Substance: LEVETIRACETAM
     Indication: STROKE-LIKE MIGRAINE ATTACKS AFTER RADIATION THERAPY
     Route: 065

REACTIONS (1)
  - Treatment failure [Unknown]
